FAERS Safety Report 5245444-3 (Version None)
Quarter: 2007Q1

REPORT INFORMATION
  Report Type: 
  Country: None (occurrence: None)
  Receive Date: 20070223
  Receipt Date: 20070213
  Transmission Date: 20070707
  Serious: Yes (Hospitalization)
  Sender: FDA-Public Use
  Company Number: JP-BRISTOL-MYERS SQUIBB COMPANY-13611280

PATIENT
  Age: 72 Year
  Sex: Male

DRUGS (5)
  1. BRIPLATIN [Suspect]
     Indication: SALIVARY GLAND CANCER
     Route: 013
     Dates: start: 20050222, end: 20050315
  2. TAXOTERE [Suspect]
     Indication: SALIVARY GLAND CANCER
     Route: 013
     Dates: start: 20050222, end: 20050315
  3. RADIOTHERAPY [Concomitant]
     Indication: SALIVARY GLAND CANCER
  4. SODIUM THIOSULFATE [Concomitant]
     Route: 042
  5. DECADRON [Concomitant]
     Route: 042
     Dates: start: 20050222, end: 20050315

REACTIONS (1)
  - COLITIS ISCHAEMIC [None]
